FAERS Safety Report 9649702 (Version 1)
Quarter: 2013Q4

REPORT INFORMATION
  Report Type: Spontaneous
  Country: GB (occurrence: GB)
  Receive Date: 20131028
  Receipt Date: 20131028
  Transmission Date: 20140711
  Serious: Yes (Other)
  Sender: FDA-Public Use
  Company Number: PHHY2013GB118402

PATIENT
  Sex: Female

DRUGS (1)
  1. PIOGLITAZONE [Suspect]
     Dosage: 30 MG, UNK

REACTIONS (2)
  - Osteopenia [Unknown]
  - Breast cancer [Unknown]
